FAERS Safety Report 9961617 (Version 1)
Quarter: 2014Q1

REPORT INFORMATION
  Report Type: Report from Study
  Country: US (occurrence: US)
  Receive Date: 20140305
  Receipt Date: 20140305
  Transmission Date: 20141002
  Serious: No
  Sender: FDA-Public Use
  Company Number: US-ABBVIE-13P-163-1112762-00

PATIENT
  Sex: Male

DRUGS (9)
  1. HUMIRA [Suspect]
     Indication: PSORIASIS
     Dates: start: 201302
  2. AMLODIPINE [Concomitant]
     Indication: HYPERTENSION
     Dosage: 5 MG DAILY
     Route: 048
  3. VALSARTAN [Concomitant]
     Indication: HYPERTENSION
     Dosage: 320 MG DAILY
     Route: 048
  4. HYDROCHLOROTHIAZIDE [Concomitant]
     Indication: HYPERTENSION
     Dosage: 25 MG DAILY
     Route: 048
  5. METOPROLOL [Concomitant]
     Indication: HYPERTENSION
     Dosage: 50 MG DAILY
     Route: 048
  6. FINASTERIDE [Concomitant]
     Indication: PROSTATIC DISORDER
     Route: 048
  7. BABY ASPIRIN [Concomitant]
     Indication: DRUG TOXICITY PROPHYLAXIS
     Dosage: 10 MEQ DAILY
     Route: 048
  8. BABY ASPIRIN [Concomitant]
     Indication: CARDIOVASCULAR EVENT PROPHYLAXIS
     Dosage: 81 MG DAILY
     Route: 048
  9. LOVASTATIN [Concomitant]
     Indication: BLOOD CHOLESTEROL INCREASED
     Dosage: 40 MG DAILY
     Route: 048

REACTIONS (1)
  - Depression [Not Recovered/Not Resolved]
